FAERS Safety Report 24784071 (Version 1)
Quarter: 2024Q4

REPORT INFORMATION
  Report Type: Spontaneous
  Country: US (occurrence: US)
  Receive Date: 20241227
  Receipt Date: 20241227
  Transmission Date: 20250114
  Serious: Yes (Other)
  Sender: PFIZER
  Company Number: US-PFIZER INC-PV202400166356

PATIENT
  Age: 57 Year
  Sex: Female

DRUGS (1)
  1. CYTARABINE [Suspect]
     Active Substance: CYTARABINE
     Indication: Ocular lymphoma
     Dosage: UNK, HIGH DOSE

REACTIONS (5)
  - Febrile neutropenia [Unknown]
  - Staphylococcal infection [Unknown]
  - Eczema [Unknown]
  - Alopecia [Unknown]
  - Off label use [Unknown]
